FAERS Safety Report 24103761 (Version 1)
Quarter: 2024Q3

REPORT INFORMATION
  Report Type: Other
  Country: US (occurrence: US)
  Receive Date: 20240717
  Receipt Date: 20240717
  Transmission Date: 20241016
  Serious: Yes (Death)
  Sender: ALVOGEN
  Company Number: US-ALVOGEN-2024095068

PATIENT
  Age: 24 Year
  Sex: Female

DRUGS (6)
  1. FENTANYL [Suspect]
     Active Substance: FENTANYL\FENTANYL CITRATE
     Indication: Product used for unknown indication
  2. DEXTROMETHORPHAN [Concomitant]
     Active Substance: DEXTROMETHORPHAN
     Indication: Product used for unknown indication
  3. Delta-9-TCH [Concomitant]
     Indication: Product used for unknown indication
  4. ACETAMINOPHEN [Concomitant]
     Active Substance: ACETAMINOPHEN
     Indication: Product used for unknown indication
  5. DOXYLAMINE [Concomitant]
     Active Substance: DOXYLAMINE
     Indication: Product used for unknown indication
  6. CAFFEINE [Concomitant]
     Active Substance: CAFFEINE
     Indication: Product used for unknown indication

REACTIONS (2)
  - Toxicity to various agents [Fatal]
  - Accident [Fatal]
